FAERS Safety Report 24619431 (Version 1)
Quarter: 2024Q4

REPORT INFORMATION
  Report Type: Spontaneous
  Country: US (occurrence: US)
  Receive Date: 20241114
  Receipt Date: 20241114
  Transmission Date: 20250115
  Serious: No
  Sender: CURRAX PHARMACEUTICALS
  Company Number: US-CURRAX PHARMACEUTICALS LLC-US-2024CUR000101

PATIENT
  Age: 34 Year
  Sex: Female

DRUGS (2)
  1. CONTRAVE [Suspect]
     Active Substance: BUPROPION HYDROCHLORIDE\NALTREXONE HYDROCHLORIDE
     Indication: Decreased appetite
     Dosage: STRENGTH: 8/90 MG, 1 TABLET DAILY
     Route: 048
     Dates: start: 20231231, end: 20240106
  2. CONTRAVE [Suspect]
     Active Substance: BUPROPION HYDROCHLORIDE\NALTREXONE HYDROCHLORIDE
     Indication: Depression
     Dosage: STRENGTH: 8/90 MG, 2 TABLETS DAILY
     Route: 048
     Dates: start: 20240107, end: 20240109

REACTIONS (4)
  - Throat tightness [Recovered/Resolved]
  - Tongue discomfort [Recovered/Resolved]
  - Muscle tightness [Recovered/Resolved]
  - Drug hypersensitivity [Recovered/Resolved]

NARRATIVE: CASE EVENT DATE: 20240107
